FAERS Safety Report 5771445-2 (Version None)
Quarter: 2008Q2

REPORT INFORMATION
  Report Type: 
  Country: None (occurrence: None)
  Receive Date: 20080613
  Receipt Date: 20080602
  Transmission Date: 20081010
  Serious: Yes (Death, Hospitalization)
  Sender: FDA-Public Use
  Company Number: ID-NOVOPROD-275082

PATIENT
  Age: 80 Year
  Sex: Male

DRUGS (2)
  1. ACTRAPID NOVOLET [Suspect]
     Indication: DIABETES MELLITUS
     Dosage: 3 X 8 IU QD
     Dates: start: 20080425
  2. ACTRAPID NOVOLET [Suspect]
     Dosage: 3 X 10 IU, QD
     Dates: start: 20080426, end: 20080503

REACTIONS (4)
  - BLOOD GLUCOSE INCREASED [None]
  - DEATH [None]
  - EXPIRED DRUG ADMINISTERED [None]
  - MENTAL DISORDER [None]
